FAERS Safety Report 25232163 (Version 1)
Quarter: 2025Q2

REPORT INFORMATION
  Report Type: Report from Study
  Country: US (occurrence: US)
  Receive Date: 20250423
  Receipt Date: 20250423
  Transmission Date: 20250717
  Serious: Yes (Other)
  Sender: JOHNSON AND JOHNSON
  Company Number: US-JNJFOC-20250419614

PATIENT
  Age: 14 Year

DRUGS (1)
  1. REMICADE [Suspect]
     Active Substance: INFLIXIMAB
     Indication: Pouchitis
     Route: 041
     Dates: start: 2017, end: 2017

REACTIONS (6)
  - Haematochezia [Unknown]
  - Colectomy [Unknown]
  - Abdominal pain [Unknown]
  - Weight decreased [Unknown]
  - Treatment failure [Unknown]
  - Off label use [Unknown]

NARRATIVE: CASE EVENT DATE: 20170101
